FAERS Safety Report 5632361-X (Version None)
Quarter: 2008Q1

REPORT INFORMATION
  Report Type: 
  Country: None (occurrence: None)
  Receive Date: 20080220
  Receipt Date: 20080214
  Transmission Date: 20080703
  Serious: Yes (Hospitalization)
  Sender: FDA-Public Use
  Company Number: US-JNJFOC-20080204105

PATIENT
  Sex: Female

DRUGS (3)
  1. FLEXERIL [Suspect]
     Indication: MUSCLE SPASMS
     Route: 048
  2. PAXIL [Concomitant]
     Indication: DEPRESSION
     Route: 048
  3. HYDROCHLOROTHIAZIDE [Concomitant]
     Indication: HYPERTENSION
     Route: 048

REACTIONS (3)
  - EXPIRED DRUG ADMINISTERED [None]
  - PSYCHOTIC DISORDER [None]
  - TOXIC ENCEPHALOPATHY [None]
